FAERS Safety Report 5327838-0 (Version None)
Quarter: 2007Q2

REPORT INFORMATION
  Report Type: 
  Country: None (occurrence: None)
  Receive Date: 20070223
  Receipt Date: 20060126
  Transmission Date: 20071010
  Serious: Yes (Hospitalization)
  Sender: FDA-Public Use
  Company Number: WAES 0601USA03169

PATIENT
  Age: 60 Year
  Sex: Female

DRUGS (5)
  1. ZOCOR [Suspect]
     Indication: BLOOD CHOLESTEROL INCREASED
     Dosage: DAILY/PO
     Route: 048
     Dates: start: 20040801, end: 20051225
  2. ALTACE [Concomitant]
  3. AVANDAMET [Concomitant]
  4. NEURONTIN [Concomitant]
  5. GLIPIZIDE [Concomitant]

REACTIONS (3)
  - PHLEBITIS [None]
  - RHABDOMYOLYSIS [None]
  - WRONG TECHNIQUE IN DRUG USAGE PROCESS [None]
